FAERS Safety Report 7197766-7 (Version None)
Quarter: 2010Q4

REPORT INFORMATION
  Report Type: 
  Country: None (occurrence: None)
  Receive Date: 20101214
  Receipt Date: 20101202
  Transmission Date: 20110411
  Serious: Yes (Life-Threatening, Hospitalization)
  Sender: FDA-Public Use
  Company Number: 2010SP063014

PATIENT
  Age: 55 Year
  Sex: Female

DRUGS (14)
  1. TEMOZOLOMIDE [Suspect]
     Indication: GLIOBLASTOMA MULTIFORME
     Dosage: 75 MG/M2;QD
  2. RADIATION THERAPY [Suspect]
     Indication: GLIOBLASTOMA MULTIFORME
  3. DEXAMETHASONE [Concomitant]
  4. FAMOTIDINE [Concomitant]
  5. LEVETIRACETAM [Concomitant]
  6. VITAMIN D [Concomitant]
  7. LOSARTAN POTASSIUM [Concomitant]
  8. FLUCONAZOLE [Concomitant]
  9. ASPIRIN [Concomitant]
  10. NIFEDIPINE [Concomitant]
  11. PILOCARPINE [Concomitant]
  12. DOCUSATE SODIUM [Concomitant]
  13. MULTI-VITAMINS [Concomitant]
  14. HYDROCODONE BITARTRATE AND ACETAMINOPHEN [Concomitant]

REACTIONS (5)
  - ALOPECIA [None]
  - BONE MARROW FAILURE [None]
  - CHILLS [None]
  - ORAL HERPES [None]
  - PYREXIA [None]
